FAERS Safety Report 8298641-7 (Version None)
Quarter: 2012Q2

REPORT INFORMATION
  Report Type: 
  Country: None (occurrence: None)
  Receive Date: 20120419
  Receipt Date: 20120410
  Transmission Date: 20120825
  Serious: Yes (Congenital Anomaly)
  Sender: FDA-Public Use
  Company Number: AU-ASTRAZENECA-2012SE23318

PATIENT

DRUGS (1)
  1. CANDESARTAN CILEXETIL [Suspect]
     Route: 064

REACTIONS (3)
  - CONGENITAL RENAL DISORDER [None]
  - MATERNAL DRUGS AFFECTING FOETUS [None]
  - RENAL TUBULAR DISORDER [None]
